FAERS Safety Report 12410138 (Version 1)
Quarter: 2016Q2

REPORT INFORMATION
  Report Type: Spontaneous
  Country: US (occurrence: None)
  Receive Date: 20160526
  Receipt Date: 20160526
  Transmission Date: 20160815
  Serious: No
  Sender: FDA-Public Use
  Company Number: None

PATIENT
  Age: 30 Year
  Sex: Female
  Weight: 66.68 kg

DRUGS (5)
  1. MIRVASO [Suspect]
     Active Substance: BRIMONIDINE TARTRATE
     Indication: ROSACEA
     Dosage: APPLIED TOA SURFACE, USUALLY THE SKIN
     Dates: start: 20160510, end: 20160518
  2. AZURETTE [Concomitant]
     Active Substance: DESOGESTREL\ETHINYL ESTRADIOL
  3. FLONASE [Concomitant]
     Active Substance: FLUTICASONE PROPIONATE
  4. GRASSTEK [Concomitant]
  5. SINGULAIR [Concomitant]
     Active Substance: MONTELUKAST SODIUM

REACTIONS (2)
  - Flushing [None]
  - Erythema [None]

NARRATIVE: CASE EVENT DATE: 20160514
